FAERS Safety Report 15781676 (Version 5)
Quarter: 2019Q2

REPORT INFORMATION
  Report Type: Spontaneous
  Country: US (occurrence: US)
  Receive Date: 20190102
  Receipt Date: 20190509
  Transmission Date: 20190711
  Serious: No
  Sender: FDA-Public Use
  Company Number: US-PFIZER INC-2018535375

PATIENT
  Age: 82 Year
  Sex: Female
  Weight: 80.74 kg

DRUGS (6)
  1. TOVIAZ [Suspect]
     Active Substance: FESOTERODINE FUMARATE
     Indication: BLADDER DISORDER
     Dosage: 4 MG, 1X/DAY
     Route: 048
  2. CELEBREX [Concomitant]
     Active Substance: CELECOXIB
     Indication: MULTIPLE FRACTURES
     Dosage: 200 MG, 1X/DAY
  3. CELEBREX [Concomitant]
     Active Substance: CELECOXIB
     Indication: LOWER LIMB FRACTURE
  4. TOVIAZ [Suspect]
     Active Substance: FESOTERODINE FUMARATE
     Indication: URINARY INCONTINENCE
     Dosage: 4 MG, 1X/DAY
  5. CELEBREX [Concomitant]
     Active Substance: CELECOXIB
     Indication: LUMBAR SPINAL STENOSIS
  6. CELEBREX [Concomitant]
     Active Substance: CELECOXIB
     Indication: PAIN
     Dosage: 200 MG, 1X/DAY
     Route: 048

REACTIONS (4)
  - Drug tolerance [Unknown]
  - Body height decreased [Unknown]
  - Product dose omission [Unknown]
  - Intentional product misuse [Unknown]
